FAERS Safety Report 8014601-5 (Version None)
Quarter: 2011Q4

REPORT INFORMATION
  Report Type: 
  Country: None (occurrence: None)
  Receive Date: 20111229
  Receipt Date: 20111222
  Transmission Date: 20120403
  Serious: Yes (Other)
  Sender: FDA-Public Use
  Company Number: GB-BAYER-2011-123005

PATIENT
  Age: 24 Year
  Sex: Female

DRUGS (1)
  1. CLOTRIMAZOLE [Suspect]
     Indication: VULVOVAGINAL CANDIDIASIS

REACTIONS (1)
  - VAGINAL HAEMORRHAGE [None]
